FAERS Safety Report 6674299-5 (Version None)
Quarter: 2010Q2

REPORT INFORMATION
  Report Type: 
  Country: None (occurrence: None)
  Receive Date: 20100409
  Receipt Date: 20100330
  Transmission Date: 20101027
  Serious: Yes (Death)
  Sender: FDA-Public Use
  Company Number: JP-PFIZER INC-2010041525

PATIENT
  Age: 82 Year
  Sex: Male
  Weight: 52 kg

DRUGS (11)
  1. SUNITINIB MALATE [Suspect]
     Indication: RENAL CELL CARCINOMA
     Dosage: 37.5 MG, 1X/DAY
     Route: 048
     Dates: start: 20091117, end: 20091206
  2. AMLODIPINE [Concomitant]
     Dosage: UNK
     Route: 048
     Dates: end: 20091206
  3. LOXONIN [Concomitant]
     Route: 048
     Dates: end: 20091206
  4. PROCHLORPERAZINE [Concomitant]
     Route: 048
     Dates: end: 20091206
  5. GABAPENTIN [Concomitant]
     Route: 048
     Dates: end: 20091206
  6. OMEPRAL [Concomitant]
     Route: 048
     Dates: end: 20091206
  7. URIEF [Concomitant]
     Route: 048
     Dates: end: 20091206
  8. RHYTHMY [Concomitant]
     Route: 048
     Dates: end: 20091206
  9. OXYCONTIN [Concomitant]
     Route: 048
     Dates: end: 20091206
  10. PASTARON [Concomitant]
     Dates: end: 20091206
  11. THYRADIN S [Concomitant]
     Route: 048

REACTIONS (1)
  - DEATH [None]
